FAERS Safety Report 4519698-2 (Version None)
Quarter: 2004Q4

REPORT INFORMATION
  Report Type: 
  Country: None (occurrence: None)
  Receive Date: 20041206
  Receipt Date: 20041122
  Transmission Date: 20050328
  Serious: Yes (Other)
  Sender: FDA-Public Use
  Company Number: PHHO2004CA16639

PATIENT
  Age: 68 Year
  Sex: Male

DRUGS (1)
  1. CLOZARIL [Suspect]
     Dates: start: 20001005, end: 20041115

REACTIONS (5)
  - ASTHENIA [None]
  - CSF TEST ABNORMAL [None]
  - FALL [None]
  - PYREXIA [None]
  - WHITE BLOOD CELL COUNT INCREASED [None]
